FAERS Safety Report 4316969-X (Version None)
Quarter: 2004Q1

REPORT INFORMATION
  Report Type: 
  Country: None (occurrence: None)
  Receive Date: 20040312
  Receipt Date: 20040305
  Transmission Date: 20041129
  Serious: Yes (Other)
  Sender: FDA-Public Use
  Company Number: US-JNJFOC-20040206359

PATIENT
  Age: 34 Year
  Sex: Female
  Weight: 77.1115 kg

DRUGS (3)
  1. DURAGESIC [Suspect]
     Indication: POST PROCEDURAL PAIN
     Dosage: 75 UG/HR, 1 IN 72 HOUR, TRANSDERMAL
     Route: 062
     Dates: start: 20040120, end: 20040126
  2. DURAGESIC [Suspect]
     Indication: POST PROCEDURAL PAIN
     Dosage: 75 UG/HR, 1 IN 72 HOUR, TRANSDERMAL
     Route: 062
     Dates: start: 20040206, end: 20040212
  3. KEFLEX (CEFALEXIN MONOHYDRATE) CAPSULES [Concomitant]

REACTIONS (4)
  - FLUSHING [None]
  - NAUSEA [None]
  - PHARMACEUTICAL PRODUCT COMPLAINT [None]
  - POSTOPERATIVE INFECTION [None]
